FAERS Safety Report 9423722 (Version 3)
Quarter: 2013Q4

REPORT INFORMATION
  Report Type: Spontaneous
  Country: US (occurrence: US)
  Receive Date: 20130728
  Receipt Date: 20131001
  Transmission Date: 20140711
  Serious: Yes (Other)
  Sender: FDA-Public Use
  Company Number: PHEH2013US015617

PATIENT
  Age: 39 Year
  Sex: Female
  Weight: 52.15 kg

DRUGS (5)
  1. GILENYA [Suspect]
     Indication: MULTIPLE SCLEROSIS
     Dosage: 0.5 MG, QD
     Route: 048
     Dates: start: 201201, end: 201306
  2. BACLOFEN [Concomitant]
  3. AMPYRA [Concomitant]
  4. SERTRALINE [Concomitant]
  5. TRAZODONE [Concomitant]

REACTIONS (4)
  - Abortion spontaneous [Recovered/Resolved with Sequelae]
  - Maternal exposure during pregnancy [Not Recovered/Not Resolved]
  - Adjustment disorder [Unknown]
  - Depression [Unknown]
